FAERS Safety Report 7552856-1 (Version None)
Quarter: 2011Q2

REPORT INFORMATION
  Report Type: 
  Country: None (occurrence: None)
  Receive Date: 20110616
  Receipt Date: 20110614
  Transmission Date: 20111010
  Serious: Yes (Other)
  Sender: FDA-Public Use
  Company Number: GB-PFIZER INC-2011013855

PATIENT
  Age: 51 Year

DRUGS (7)
  1. DOXAZOSIN MESYLATE [Suspect]
     Dosage: 4 MG, 1X/DAY
     Route: 065
  2. METFORMIN HCL [Suspect]
     Dosage: 1500 MG, 1 D
     Route: 065
  3. MIRTAZAPINE [Suspect]
     Indication: DEPRESSION
     Dosage: UNK
     Route: 065
  4. CETIRIZINE [Concomitant]
     Dosage: 10 MG, 1 D
     Route: 066
  5. ALLOPURINOL [Concomitant]
     Dosage: 300 MG, 1 D
     Route: 065
  6. COLCHICINE [Concomitant]
     Dosage: 1 MG, 1 D
     Route: 065
  7. VALSARTAN [Concomitant]
     Dosage: 120 MG, 1 D
     Route: 065

REACTIONS (1)
  - PANCREATITIS ACUTE [None]
